FAERS Safety Report 13591444 (Version 4)
Quarter: 2019Q3

REPORT INFORMATION
  Report Type: Spontaneous
  Country: US (occurrence: US)
  Receive Date: 20170529
  Receipt Date: 20190815
  Transmission Date: 20191004
  Serious: No
  Sender: FDA-Public Use
  Company Number: US-PFIZER INC-2016254239

PATIENT
  Age: 48 Year
  Sex: Female

DRUGS (2)
  1. LYRICA [Suspect]
     Active Substance: PREGABALIN
     Indication: NEUROPATHY PERIPHERAL
     Dosage: 150 MG, 2X/DAY
     Route: 048
     Dates: start: 20160428
  2. LYRICA [Suspect]
     Active Substance: PREGABALIN
     Indication: POLYNEUROPATHY

REACTIONS (2)
  - Gait disturbance [Unknown]
  - Malaise [Unknown]
